FAERS Safety Report 5827260-4 (Version None)
Quarter: 2008Q3

REPORT INFORMATION
  Report Type: 
  Country: None (occurrence: None)
  Receive Date: 20080730
  Receipt Date: 20080715
  Transmission Date: 20090109
  Serious: Yes (Hospitalization)
  Sender: FDA-Public Use
  Company Number: JP-GENENTECH-261435

PATIENT
  Sex: Male
  Weight: 65 kg

DRUGS (6)
  1. BEVACIZUMAB [Suspect]
     Indication: COLON CANCER RECURRENT
     Dosage: 5 MG/KG, QD
     Route: 041
     Dates: start: 20070906, end: 20071114
  2. OXALIPLATIN [Suspect]
     Indication: COLON CANCER RECURRENT
     Dosage: 85 MG/M2, QD
     Route: 041
     Dates: start: 20070906, end: 20071114
  3. FLUOROURACIL [Suspect]
     Indication: COLON CANCER RECURRENT
     Dosage: 350 MG/M2, QD
     Route: 042
     Dates: start: 20070906, end: 20071116
  4. ISOVORIN [Suspect]
     Indication: COLON CANCER RECURRENT
     Dosage: 100 MG/M2, QD
     Route: 041
     Dates: start: 20070906, end: 20071115
  5. CANDESARTAN CILEXETIL [Concomitant]
     Indication: DRUG USE FOR UNKNOWN INDICATION
  6. INDAPAMIDE [Concomitant]
     Indication: DRUG USE FOR UNKNOWN INDICATION

REACTIONS (3)
  - NAUSEA [None]
  - STOMATITIS [None]
  - VOMITING [None]
